FAERS Safety Report 8626962 (Version 2)
Quarter: 2013Q3

REPORT INFORMATION
  Report Type: Spontaneous
  Country: DK (occurrence: PT)
  Receive Date: 20120620
  Receipt Date: 20130917
  Transmission Date: 20140515
  Serious: Yes (Life-Threatening)
  Sender: FDA-Public Use
  Company Number: PT-FRI-1000027206

PATIENT
  Age: 85 Year
  Sex: Male
  Weight: 72 kg

DRUGS (3)
  1. ESCITALOPRAM [Suspect]
     Indication: DEPRESSION
     Dosage: 10 MG
     Route: 048
     Dates: start: 20111223, end: 20111224
  2. COAPROVEL [Concomitant]
     Indication: HYPERTENSION
     Dates: start: 2001
  3. LORENIN [Concomitant]
     Indication: ANXIETY
     Dates: start: 2001

REACTIONS (6)
  - Dizziness [Recovered/Resolved]
  - Oedema mouth [Recovered/Resolved]
  - Dyspnoea [Recovered/Resolved]
  - Oropharyngeal pain [Recovered/Resolved]
  - Swollen tongue [Recovered/Resolved]
  - Angioedema [Recovered/Resolved]
